FAERS Safety Report 18999222 (Version 1)
Quarter: 2021Q1

REPORT INFORMATION
  Report Type: Spontaneous
  Country: US (occurrence: US)
  Receive Date: 20210311
  Receipt Date: 20210311
  Transmission Date: 20210420
  Serious: No
  Sender: FDA-Public Use
  Company Number: US-PFIZER INC-2021236019

PATIENT
  Age: 67 Year
  Sex: Female

DRUGS (1)
  1. AROMASIN [Suspect]
     Active Substance: EXEMESTANE
     Indication: BENIGN BREAST NEOPLASM
     Dosage: UNK

REACTIONS (3)
  - Bone disorder [Unknown]
  - Bone density abnormal [Unknown]
  - Off label use [Unknown]
